FAERS Safety Report 15785943 (Version 2)
Quarter: 2019Q1

REPORT INFORMATION
  Report Type: Spontaneous
  Country: US (occurrence: US)
  Receive Date: 20190103
  Receipt Date: 20190108
  Transmission Date: 20190417
  Serious: No
  Sender: FDA-Public Use
  Company Number: US-SA-2014SA049177

PATIENT
  Age: 18 Year
  Sex: Male

DRUGS (3)
  1. GAMMAGARD [Concomitant]
     Active Substance: HUMAN IMMUNOGLOBULIN G
  2. ALDURAZYME [Suspect]
     Active Substance: LARONIDASE
     Indication: MUCOPOLYSACCHARIDOSIS I
     Dosage: 23.2 MG,QW
     Route: 042
     Dates: end: 20181212
  3. ALDURAZYME [Suspect]
     Active Substance: LARONIDASE
     Indication: MUCOPOLYSACCHARIDOSIS I
     Dosage: 23.2 MG,QW
     Route: 042
     Dates: start: 20110309

REACTIONS (4)
  - Gastroenteritis viral [Unknown]
  - Product dose omission [Unknown]
  - Hospice care [Unknown]
  - Pyrexia [Unknown]

NARRATIVE: CASE EVENT DATE: 20140402
